FAERS Safety Report 6603115-2 (Version None)
Quarter: 2010Q1

REPORT INFORMATION
  Report Type: 
  Country: None (occurrence: None)
  Receive Date: 20100226
  Receipt Date: 20100223
  Transmission Date: 20100710
  Serious: Yes (Death, Hospitalization)
  Sender: FDA-Public Use
  Company Number: PHHY2010JP10576

PATIENT
  Sex: Female

DRUGS (1)
  1. SANDOSTATIN LAR [Suspect]
     Indication: ACROMEGALY
     Dosage: 20 MG EVERY FOUR WEEKS
     Route: 030
     Dates: start: 20091101

REACTIONS (5)
  - CARDIAC FAILURE [None]
  - PULMONARY HYPERTENSION [None]
  - PULMONARY INFARCTION [None]
  - RESPIRATORY FAILURE [None]
  - SEPSIS [None]
